FAERS Safety Report 8152492-2 (Version None)
Quarter: 2012Q1

REPORT INFORMATION
  Report Type: 
  Country: None (occurrence: None)
  Receive Date: 20120221
  Receipt Date: 20120215
  Transmission Date: 20120608
  Serious: No
  Sender: FDA-Public Use
  Company Number: US-PFIZER INC-2012002420

PATIENT
  Sex: Female

DRUGS (2)
  1. LYRICA [Suspect]
     Dosage: 100 MG, 2X/DAY
  2. PRISTIQ [Suspect]
     Dosage: UNK

REACTIONS (3)
  - BACK PAIN [None]
  - FIBROMYALGIA [None]
  - MUSCULOSKELETAL PAIN [None]
